FAERS Safety Report 19115900 (Version 2)
Quarter: 2021Q2

REPORT INFORMATION
  Report Type: Other
  Country: US (occurrence: US)
  Receive Date: 20210409
  Receipt Date: 20210504
  Transmission Date: 20210717
  Serious: Yes (Other)
  Sender: FDA-Public Use
  Company Number: US-ROCHE-2808484

PATIENT
  Sex: Female

DRUGS (12)
  1. OXYCODONE [Concomitant]
     Active Substance: OXYCODONE
  2. PROAIR HFA [Concomitant]
     Active Substance: ALBUTEROL SULFATE
  3. LINZESS [Concomitant]
     Active Substance: LINACLOTIDE
  4. GABAPENTIN. [Concomitant]
     Active Substance: GABAPENTIN
  5. TEMAZEPAM. [Concomitant]
     Active Substance: TEMAZEPAM
  6. SUMATRIPTAN. [Concomitant]
     Active Substance: SUMATRIPTAN
  7. XELODA [Suspect]
     Active Substance: CAPECITABINE
     Indication: LOBULAR BREAST CARCINOMA IN SITU
  8. XELODA [Suspect]
     Active Substance: CAPECITABINE
     Indication: RECTAL CANCER
     Dosage: TAKE 3 TABLET(S) BY MOUTH TWICE A DAY FOR 14 DAYS THEN OFF A WEEK EACH CYCLE
     Route: 048
  9. XELODA [Suspect]
     Active Substance: CAPECITABINE
     Indication: CEREBRAL INFARCTION
  10. XELODA [Suspect]
     Active Substance: CAPECITABINE
     Indication: OVARIAN CANCER
  11. BACLOFEN. [Concomitant]
     Active Substance: BACLOFEN
  12. ZOFRAN [Concomitant]
     Active Substance: ONDANSETRON HYDROCHLORIDE

REACTIONS (1)
  - Craniocerebral injury [Unknown]
